FAERS Safety Report 7322968-6 (Version None)
Quarter: 2011Q1

REPORT INFORMATION
  Report Type: 
  Country: None (occurrence: None)
  Receive Date: 20110301
  Receipt Date: 20110218
  Transmission Date: 20110831
  Serious: Yes (Other)
  Sender: FDA-Public Use
  Company Number: PHHY2011IT15031

PATIENT
  Sex: Male

DRUGS (2)
  1. ZOMETA [Suspect]
     Indication: RENAL CELL CARCINOMA
     Dosage: 4 MG,EVERY 4 WEEKS
     Dates: start: 20080101
  2. SUTENT [Suspect]
     Indication: RENAL CELL CARCINOMA
     Dosage: 50 MG, PER 4 WEEKS OR EVERY 6 WEEKS
     Route: 048
     Dates: start: 20080813, end: 20091216

REACTIONS (2)
  - OSTEONECROSIS OF JAW [None]
  - HYPOTHYROIDISM [None]
